FAERS Safety Report 23442409 (Version 1)
Quarter: 2024Q1

REPORT INFORMATION
  Report Type: Spontaneous
  Country: US (occurrence: None)
  Receive Date: 20240124
  Receipt Date: 20240124
  Transmission Date: 20240409
  Serious: No
  Sender: FDA-Public Use
  Company Number: None

PATIENT
  Age: 18 Year
  Sex: Male
  Weight: 97.07 kg

DRUGS (1)
  1. ENBREL [Suspect]
     Active Substance: ETANERCEPT
     Indication: Psoriasis
     Dosage: ? INJECT 50MG SUBCUTANEOUSLY ONCE  WEEKLY AS DIRECTED.
     Route: 058
     Dates: start: 202308

REACTIONS (2)
  - COVID-19 [None]
  - Therapy interrupted [None]
